FAERS Safety Report 14064233 (Version 1)
Quarter: 2017Q4

REPORT INFORMATION
  Report Type: Spontaneous
  Country: CN (occurrence: CN)
  Receive Date: 20171009
  Receipt Date: 20171009
  Transmission Date: 20180321
  Serious: Yes (Life-Threatening)
  Sender: FDA-Public Use
  Company Number: CN-PFIZER INC-2017432678

PATIENT
  Age: 63 Year
  Sex: Female

DRUGS (3)
  1. CORDARONE [Suspect]
     Active Substance: AMIODARONE HYDROCHLORIDE
     Indication: VENTRICULAR TACHYCARDIA
     Dosage: 0.3 G, 1X/DAY
     Route: 042
     Dates: start: 20170819, end: 20170824
  2. GLUCOSE INJECTION [Concomitant]
     Active Substance: DEXTROSE
     Dosage: UNK
     Dates: start: 20170819, end: 20170824
  3. CORDARONE [Suspect]
     Active Substance: AMIODARONE HYDROCHLORIDE
     Indication: VENTRICULAR TACHYCARDIA
     Dosage: 0.2 G, 3X/DAY
     Route: 048
     Dates: start: 20170819, end: 20170824

REACTIONS (2)
  - Torsade de pointes [Unknown]
  - Loss of consciousness [Recovering/Resolving]

NARRATIVE: CASE EVENT DATE: 20170824
